FAERS Safety Report 15794283 (Version 1)
Quarter: 2019Q1

REPORT INFORMATION
  Report Type: Spontaneous
  Country: US (occurrence: US)
  Receive Date: 20190106
  Receipt Date: 20190106
  Transmission Date: 20190417
  Serious: No
  Sender: FDA-Public Use
  Company Number: None

PATIENT
  Age: 49 Year
  Sex: Female
  Weight: 58.5 kg

DRUGS (7)
  1. THYROID SUPPLEMENT [Concomitant]
  2. EFFEXOR XR [Concomitant]
     Active Substance: VENLAFAXINE HYDROCHLORIDE
  3. AIMOVIG [Suspect]
     Active Substance: ERENUMAB-AOOE
     Indication: MIGRAINE PROPHYLAXIS
     Dosage: ?          QUANTITY:1 INJECTION(S);OTHER FREQUENCY:ONCE A MONTH;?
     Route: 030
     Dates: start: 20181101, end: 20181201
  4. CLONAZEPAM. [Concomitant]
     Active Substance: CLONAZEPAM
  5. NP THYROID [Concomitant]
     Active Substance: LEVOTHYROXINE\LIOTHYRONINE
  6. MICROGESTIN [Concomitant]
     Active Substance: ETHINYL ESTRADIOL\NORETHINDRONE ACETATE
  7. MULTIVITAMIN [Concomitant]
     Active Substance: VITAMINS

REACTIONS (7)
  - Chills [None]
  - Myalgia [None]
  - Influenza like illness [None]
  - Insomnia [None]
  - Migraine [None]
  - Drug ineffective [None]
  - Disturbance in attention [None]

NARRATIVE: CASE EVENT DATE: 20181103
